FAERS Safety Report 6875068-3 (Version None)
Quarter: 2010Q3

REPORT INFORMATION
  Report Type: 
  Country: None (occurrence: None)
  Receive Date: 20100727
  Receipt Date: 20100722
  Transmission Date: 20110219
  Serious: Yes (Death)
  Sender: FDA-Public Use
  Company Number: IN-AMGEN-UK238369

PATIENT
  Sex: Female

DRUGS (6)
  1. DENOSUMAB [Suspect]
     Indication: METASTASES TO BONE
     Route: 058
     Dates: start: 20070525, end: 20070622
  2. ZOMETA [Suspect]
     Indication: METASTASES TO BONE
     Route: 042
     Dates: start: 20070525, end: 20070622
  3. MORPHINE SULFATE [Concomitant]
     Route: 048
     Dates: end: 20070719
  4. LORAZEPAM [Concomitant]
     Route: 048
  5. CALCIUM WITH VITAMIN D [Concomitant]
     Route: 048
  6. METOCLOPRAMIDE [Concomitant]
     Route: 048

REACTIONS (1)
  - DEATH [None]
